FAERS Safety Report 4504714-4 (Version None)
Quarter: 2004Q4

REPORT INFORMATION
  Report Type: 
  Country: None (occurrence: None)
  Receive Date: 20041118
  Receipt Date: 20040802
  Transmission Date: 20050328
  Serious: Yes (Other)
  Sender: FDA-Public Use
  Company Number: GB-MERCK-0408GBR00019

PATIENT
  Age: 84 Year
  Sex: Female
  Weight: 50 kg

DRUGS (2)
  1. COZAAR [Suspect]
     Route: 065
  2. ASPIRIN [Concomitant]
     Route: 065

REACTIONS (2)
  - BLOOD SODIUM DECREASED [None]
  - CONVULSION [None]
